FAERS Safety Report 8564640-0 (Version None)
Quarter: 2012Q3

REPORT INFORMATION
  Report Type: 
  Country: None (occurrence: None)
  Receive Date: 20120803
  Receipt Date: 20120727
  Transmission Date: 20120928
  Serious: No
  Sender: FDA-Public Use
  Company Number: US-B.I. PHARMACEUTICALS,INC./RIDGEFIELD-2012-BP-15161BP

PATIENT
  Age: 53 Year
  Sex: Male

DRUGS (4)
  1. PRADAXA [Suspect]
  2. FENTANYL [Concomitant]
     Indication: ABDOMINAL ADHESIONS
     Route: 061
  3. PRADAXA [Suspect]
     Indication: THROMBOSIS PROPHYLAXIS
     Dosage: 75 MG
     Route: 048
     Dates: start: 20120601, end: 20120622
  4. IRON [Suspect]
     Indication: BLOOD IRON DECREASED
     Dates: start: 20120701, end: 20120701

REACTIONS (5)
  - ABDOMINAL PAIN [None]
  - VOMITING [None]
  - BLOOD IRON DECREASED [None]
  - HAEMATOCHEZIA [None]
  - DIARRHOEA [None]
